FAERS Safety Report 10804631 (Version 1)
Quarter: 2015Q1

REPORT INFORMATION
  Report Type: Report from Study
  Country: US (occurrence: US)
  Receive Date: 20150217
  Receipt Date: 20150217
  Transmission Date: 20150721
  Serious: No
  Sender: FDA-Public Use
  Company Number: US-ABBVIE-14K-163-1238211-00

PATIENT
  Age: 63 Year
  Sex: Female

DRUGS (4)
  1. HYDROXYCHLOROQUINE [Concomitant]
     Active Substance: HYDROXYCHLOROQUINE
     Indication: RHEUMATOID ARTHRITIS
  2. METFORMIN [Concomitant]
     Active Substance: METFORMIN HYDROCHLORIDE
     Indication: DIABETES MELLITUS
  3. HUMIRA [Suspect]
     Active Substance: ADALIMUMAB
     Indication: RHEUMATOID ARTHRITIS
     Dates: start: 20140317
  4. XARELTO [Concomitant]
     Active Substance: RIVAROXABAN
     Indication: THROMBOSIS

REACTIONS (7)
  - Emotional distress [Unknown]
  - Tearfulness [Unknown]
  - Nervousness [Unknown]
  - Injection site erythema [Unknown]
  - Wrong technique in drug usage process [Unknown]
  - Incorrect dose administered [Unknown]
  - Incorrect dose administered [Unknown]

NARRATIVE: CASE EVENT DATE: 20140331
